FAERS Safety Report 5062083-8 (Version None)
Quarter: 2006Q3

REPORT INFORMATION
  Report Type: 
  Country: None (occurrence: None)
  Receive Date: 20060703
  Receipt Date: 20051004
  Transmission Date: 20061208
  Serious: No
  Sender: FDA-Public Use
  Company Number: 2005S1009900

PATIENT
  Age: 44 Year
  Sex: Male
  Weight: 89.3586 kg

DRUGS (5)
  1. CLOZAPINE [Suspect]
     Indication: SCHIZOPHRENIA
     Dosage: 200 MG; HS; PO
     Route: 048
     Dates: start: 20030801, end: 20051001
  2. VITAMINS NOS [Concomitant]
  3. DOCUSATE SODIUM [Concomitant]
  4. VALPROATE SODIUM [Concomitant]
  5. BENZTROPINE MESYLATE [Concomitant]

REACTIONS (3)
  - AGRANULOCYTOSIS [None]
  - GRANULOCYTOPENIA [None]
  - LEUKOPENIA [None]
